FAERS Safety Report 8399734-6 (Version None)
Quarter: 2012Q2

REPORT INFORMATION
  Report Type: 
  Country: None (occurrence: None)
  Receive Date: 20120531
  Receipt Date: 20120524
  Transmission Date: 20120825
  Serious: Yes (Other)
  Sender: FDA-Public Use
  Company Number: IE-PFIZER INC-2011169337

PATIENT
  Age: 52 Year
  Sex: Male
  Weight: 106 kg

DRUGS (9)
  1. LYRICA [Suspect]
     Indication: NEURALGIA
     Dosage: 75 MG, 2X/DAY
     Dates: start: 20120522
  2. COVERSYL PLUS [Concomitant]
     Dosage: 5 MG, DAILY
     Route: 048
  3. LYRICA [Suspect]
     Indication: AFFECTIVE DISORDER
     Dosage: 150 MG, 3X/DAY
     Route: 048
     Dates: start: 20090328
  4. MIRTAZAPINE [Concomitant]
     Dosage: 45 MG, DAILY
     Route: 048
  5. DIAZEPAM [Concomitant]
     Dosage: 10 MG, 3X/DAY
     Route: 048
  6. VENTOLIN [Concomitant]
     Dosage: 4 TIMES DAILY
     Route: 048
  7. LYRICA [Suspect]
     Dosage: 450 MG, DAILY
  8. TRAMADOL [Concomitant]
     Dosage: 50 MG, 3X/DAY
     Route: 048
  9. FLURAZEPAM [Concomitant]
     Dosage: 30 MG, AT NIGHT
     Route: 048

REACTIONS (8)
  - WITHDRAWAL SYNDROME [None]
  - MOOD SWINGS [None]
  - DRUG ABUSE [None]
  - DEPRESSED MOOD [None]
  - EUPHORIC MOOD [None]
  - AGITATION [None]
  - ANXIETY [None]
  - INCORRECT DOSE ADMINISTERED [None]
